FAERS Safety Report 9644990 (Version 2)
Quarter: 2014Q2

REPORT INFORMATION
  Report Type: Spontaneous
  Country: US (occurrence: US)
  Receive Date: 20131025
  Receipt Date: 20140516
  Transmission Date: 20141212
  Serious: No
  Sender: FDA-Public Use
  Company Number: US-PFIZER INC-2013305017

PATIENT
  Age: 42 Year
  Sex: Female
  Weight: 68.03 kg

DRUGS (5)
  1. PRISTIQ [Suspect]
     Indication: DEPRESSION
     Dosage: 50 MG, 1X/DAY
     Route: 048
     Dates: start: 201308, end: 201309
  2. PRISTIQ [Suspect]
     Dosage: 100MG (50MG 2TAB), 1X/DAY
     Dates: start: 201309, end: 201310
  3. PRISTIQ [Suspect]
     Dosage: 100 MG, 1X/DAY
     Dates: start: 201310
  4. ADDERALL [Concomitant]
     Dosage: UNK
  5. LEVOTHYROXINE [Concomitant]
     Dosage: UNK

REACTIONS (3)
  - Diarrhoea [Recovered/Resolved]
  - Product solubility abnormal [Unknown]
  - Drug ineffective [Unknown]
